FAERS Safety Report 12742026 (Version 1)
Quarter: 2016Q3

REPORT INFORMATION
  Report Type: Spontaneous
  Country: US (occurrence: US)
  Receive Date: 20160914
  Receipt Date: 20160914
  Transmission Date: 20161109
  Serious: No
  Sender: FDA-Public Use
  Company Number: US-ASTRAZENECA-2014SE69100

PATIENT
  Age: 67 Year
  Sex: Female
  Weight: 104.3 kg

DRUGS (5)
  1. GLYBURIDE. [Concomitant]
     Active Substance: GLYBURIDE
  2. METFORMIN [Concomitant]
     Active Substance: METFORMIN HYDROCHLORIDE
  3. BYDUREON [Suspect]
     Active Substance: EXENATIDE
     Indication: TYPE 2 DIABETES MELLITUS
     Route: 058
     Dates: start: 20140906
  4. WARFARIN [Concomitant]
     Active Substance: WARFARIN
     Indication: MITRAL VALVE REPLACEMENT
  5. COREG [Concomitant]
     Active Substance: CARVEDILOL
     Indication: MITRAL VALVE REPLACEMENT

REACTIONS (4)
  - Anxiety [Unknown]
  - Nausea [Unknown]
  - Blood glucose increased [Recovering/Resolving]
  - Drug dose omission [Unknown]

NARRATIVE: CASE EVENT DATE: 201409
